FAERS Safety Report 7583046-4 (Version None)
Quarter: 2011Q2

REPORT INFORMATION
  Report Type: 
  Country: None (occurrence: None)
  Receive Date: 20110627
  Receipt Date: 20110627
  Transmission Date: 20111010
  Serious: Yes (Other)
  Sender: FDA-Public Use
  Company Number: None

PATIENT
  Age: 71 Year
  Sex: Female
  Weight: 67.586 kg

DRUGS (8)
  1. BACTRIM [Concomitant]
  2. IBUPROFEN [Concomitant]
  3. FEMARA [Suspect]
     Indication: BREAST CANCER
     Dosage: 2.5 MG QDAILY PO
     Route: 048
     Dates: start: 20110519, end: 20110614
  4. HERCEPTIN [Concomitant]
  5. PEPCID [Concomitant]
  6. DOCETAXEL [Concomitant]
  7. CYTOXAN [Concomitant]
  8. DECADRON [Concomitant]

REACTIONS (3)
  - RASH ERYTHEMATOUS [None]
  - RASH GENERALISED [None]
  - RASH PRURITIC [None]
